FAERS Safety Report 25746126 (Version 1)
Quarter: 2025Q3

REPORT INFORMATION
  Report Type: Spontaneous
  Country: US (occurrence: US)
  Receive Date: 20250901
  Receipt Date: 20250901
  Transmission Date: 20251020
  Serious: No
  Sender: IPSEN BIOPHARMACEUTICALS, INC.
  Company Number: US-IPSEN Group, Research and Development-2025-20432

PATIENT
  Age: 9 Year
  Sex: Female

DRUGS (3)
  1. BYLVAY [Suspect]
     Active Substance: ODEVIXIBAT
     Indication: Off label use
     Dosage: 200 MCG CAP AND 600MCG CAP ONCE DAILY?CAPSULE
     Route: 048
     Dates: start: 20240110, end: 202401
  2. BYLVAY [Suspect]
     Active Substance: ODEVIXIBAT
     Indication: Blood cholesterol normal
     Dosage: 200 MCG CAP AND 600MCG CAP ONCE?DAILY?CAPSULE
     Route: 048
     Dates: start: 202401
  3. BYLVAY [Suspect]
     Active Substance: ODEVIXIBAT
     Indication: Bile acid synthesis disorder

REACTIONS (2)
  - Off label use [Unknown]
  - Diarrhoea [Not Recovered/Not Resolved]

NARRATIVE: CASE EVENT DATE: 20240110
